FAERS Safety Report 7242372-9 (Version None)
Quarter: 2011Q1

REPORT INFORMATION
  Report Type: 
  Country: None (occurrence: None)
  Receive Date: 20110125
  Receipt Date: 20110107
  Transmission Date: 20110831
  Serious: No
  Sender: FDA-Public Use
  Company Number: US-BIOGENIDEC-2010BI039586

PATIENT
  Sex: Female

DRUGS (2)
  1. TYSABRI [Suspect]
     Indication: MULTIPLE SCLEROSIS
     Route: 042
     Dates: start: 20080925, end: 20100821
  2. TYSABRI [Suspect]
     Route: 042
     Dates: start: 20100924

REACTIONS (5)
  - DIABETES MELLITUS [None]
  - DECREASED APPETITE [None]
  - MELANOCYTIC NAEVUS [None]
  - PAIN [None]
  - ARTHRITIS [None]
